FAERS Safety Report 15273315 (Version 1)
Quarter: 2018Q3

REPORT INFORMATION
  Report Type: Spontaneous
  Country: FR (occurrence: FR)
  Receive Date: 20180813
  Receipt Date: 20180813
  Transmission Date: 20181010
  Serious: Yes (Other)
  Sender: FDA-Public Use
  Company Number: FR-SHIRE-FR201830920

PATIENT

DRUGS (4)
  1. HUMAN NORMAL IMMUNOGLOBULIN [Suspect]
     Active Substance: HUMAN IMMUNOGLOBULIN G
     Indication: NEPHROTIC SYNDROME
     Dosage: 36000 MG/KG, UNK
     Route: 041
  2. HUMAN NORMAL IMMUNOGLOBULIN [Suspect]
     Active Substance: HUMAN IMMUNOGLOBULIN G
     Indication: PARVOVIRUS B19 INFECTION
  3. HUMAN NORMAL IMMUNOGLOBULIN [Suspect]
     Active Substance: HUMAN IMMUNOGLOBULIN G
     Indication: FOCAL SEGMENTAL GLOMERULOSCLEROSIS
  4. METHYLPREDNISOLONE. [Concomitant]
     Active Substance: METHYLPREDNISOLONE
     Indication: PRODUCT USED FOR UNKNOWN INDICATION
     Route: 055

REACTIONS (3)
  - Product use in unapproved indication [Unknown]
  - Drug ineffective for unapproved indication [Unknown]
  - End stage renal disease [Unknown]
